FAERS Safety Report 7878324-5 (Version None)
Quarter: 2011Q4

REPORT INFORMATION
  Report Type: 
  Country: None (occurrence: None)
  Receive Date: 20111028
  Receipt Date: 20111017
  Transmission Date: 20120403
  Serious: Yes (Hospitalization, Other)
  Sender: FDA-Public Use
  Company Number: DSA_47746_2011

PATIENT
  Sex: Female

DRUGS (10)
  1. LIPITOR [Concomitant]
  2. LECTOPAM TAB [Concomitant]
  3. ASPIRIN [Concomitant]
  4. WELLBUTRIN XL [Suspect]
     Indication: MAJOR DEPRESSION
     Dosage: (150 MG QD ORAL) ; (150 MG QD ORAL)
     Route: 048
     Dates: start: 20100419, end: 20110101
  5. WELLBUTRIN XL [Suspect]
     Indication: MAJOR DEPRESSION
     Dosage: (150 MG QD ORAL) ; (150 MG QD ORAL)
     Route: 048
     Dates: start: 20110301
  6. METFORMIN HCL [Concomitant]
  7. PANTOLOC /01263204/ [Concomitant]
  8. INSULIN [Concomitant]
  9. WELLBUTRIN SR [Concomitant]
  10. MONOCOR [Concomitant]

REACTIONS (1)
  - HALLUCINATION, AUDITORY [None]
